FAERS Safety Report 9070350 (Version 1)
Quarter: 2013Q1

REPORT INFORMATION
  Report Type: Spontaneous
  Country: US (occurrence: US)
  Receive Date: 20130128
  Receipt Date: 20130128
  Transmission Date: 20140127
  Serious: No
  Sender: FDA-Public Use
  Company Number: US-ABBOTT-12P-163-0899040-00

PATIENT
  Age: 51 None
  Sex: Female

DRUGS (9)
  1. HUMIRA 40 MG/0.8 ML PEN [Suspect]
     Indication: RHEUMATOID ARTHRITIS
     Route: 058
     Dates: end: 20120123
  2. SINGULAIR [Concomitant]
     Indication: ASTHMA
  3. ZOLOFT [Concomitant]
     Indication: ANXIETY
  4. MOVE FREE [Concomitant]
     Indication: PROPHYLAXIS
  5. ONE A DAY VITAMIN [Concomitant]
     Indication: SUPPLEMENTATION THERAPY
  6. CALCIUM [Concomitant]
     Indication: SUPPLEMENTATION THERAPY
  7. METHOTREXATE [Concomitant]
     Indication: RHEUMATOID ARTHRITIS
     Dosage: 6 TABS ON TUESDAYS
     Dates: end: 201110
  8. DICLOFENAC [Concomitant]
     Indication: RHEUMATOID ARTHRITIS
     Dates: end: 201111
  9. BABY ASPIRIN [Concomitant]
     Indication: PRODUCT USED FOR UNKNOWN INDICATION
     Dates: end: 201111

REACTIONS (15)
  - Oropharyngeal pain [Recovered/Resolved]
  - Cough [Recovered/Resolved]
  - Asthenia [Recovered/Resolved]
  - Pain [Recovered/Resolved]
  - Pharyngitis streptococcal [Recovered/Resolved]
  - Platelet count abnormal [Not Recovered/Not Resolved]
  - Hepatic enzyme increased [Not Recovered/Not Resolved]
  - Platelet count abnormal [Not Recovered/Not Resolved]
  - Hepatic enzyme increased [Not Recovered/Not Resolved]
  - Platelet count abnormal [Not Recovered/Not Resolved]
  - Platelet count abnormal [Not Recovered/Not Resolved]
  - Hepatic enzyme increased [Not Recovered/Not Resolved]
  - Arthralgia [Not Recovered/Not Resolved]
  - Platelet count abnormal [Not Recovered/Not Resolved]
  - Hepatic enzyme increased [Not Recovered/Not Resolved]
